FAERS Safety Report 15687738 (Version 2)
Quarter: 2020Q1

REPORT INFORMATION
  Report Type: Spontaneous
  Country: US (occurrence: US)
  Receive Date: 20181205
  Receipt Date: 20200107
  Transmission Date: 20200409
  Serious: Yes (Hospitalization, Other)
  Sender: FDA-Public Use
  Company Number: US-ROCHE-2211332

PATIENT
  Age: 5 Day
  Sex: Male

DRUGS (3)
  1. ACTIVASE [Suspect]
     Active Substance: ALTEPLASE
     Indication: AORTIC THROMBOSIS
     Route: 065
  2. HEPARIN [Concomitant]
     Active Substance: HEPARIN SODIUM
     Route: 065
  3. MILRINONE [Concomitant]
     Active Substance: MILRINONE

REACTIONS (2)
  - Pharyngeal haemorrhage [Unknown]
  - Cerebral haemorrhage [Unknown]
